FAERS Safety Report 7705609-5 (Version None)
Quarter: 2011Q3

REPORT INFORMATION
  Report Type: 
  Country: None (occurrence: None)
  Receive Date: 20110824
  Receipt Date: 20110810
  Transmission Date: 20111222
  Serious: No
  Sender: FDA-Public Use
  Company Number: US-B.I. PHARMACEUTICALS,INC./RIDGEFIELD-2011-BP-19706BP

PATIENT
  Age: 82 Year
  Sex: Female

DRUGS (4)
  1. ATENOLOL [Concomitant]
     Indication: HYPERTENSION
     Dosage: 50 MG
     Route: 048
  2. COZAAR [Concomitant]
     Indication: HYPERTENSION
     Route: 048
  3. PRADAXA [Suspect]
     Indication: ATRIAL FIBRILLATION
     Dosage: 300 MG
     Route: 048
     Dates: start: 20110401
  4. NIFEDIPINE [Concomitant]
     Indication: HYPERTENSION
     Route: 048

REACTIONS (4)
  - HAEMORRHAGE [None]
  - DYSPEPSIA [None]
  - OESOPHAGEAL PAIN [None]
  - SENSATION OF FOREIGN BODY [None]
